FAERS Safety Report 5481098-9 (Version None)
Quarter: 2007Q4

REPORT INFORMATION
  Report Type: 
  Country: None (occurrence: None)
  Receive Date: 20071003
  Receipt Date: 20070919
  Transmission Date: 20080405
  Serious: Yes (Hospitalization)
  Sender: FDA-Public Use
  Company Number: 100#08#2007-03740

PATIENT
  Age: 82 Year
  Sex: Female

DRUGS (3)
  1. ZOLPIDEM (ZOLPIDEM) (ZOLPIDEM) [Suspect]
     Indication: MAJOR DEPRESSION
     Dosage: 10 MG
  2. FLUVOXAMINE MALEATE [Suspect]
     Indication: MAJOR DEPRESSION
     Dosage: 50 MG + 100 MG + 50 MG (3 TIMES A DAY)
  3. FLUVOXAMINE MALEATE [Suspect]
     Indication: MAJOR DEPRESSION
     Dosage: 50 MG + 100 MG + 50 MG (3 TIMES A DAY)

REACTIONS (8)
  - AMNESIA [None]
  - DEPRESSED MOOD [None]
  - DRUG INEFFECTIVE [None]
  - DRUG INTERACTION [None]
  - FATIGUE [None]
  - HALLUCINATION, VISUAL [None]
  - INSOMNIA [None]
  - SUICIDAL IDEATION [None]
